FAERS Safety Report 9067667 (Version 3)
Quarter: 2013Q1

REPORT INFORMATION
  Report Type: Spontaneous
  Country: DE (occurrence: DE)
  Receive Date: 20130128
  Receipt Date: 20130308
  Transmission Date: 20140127
  Serious: Yes (Life-Threatening, Hospitalization, Other)
  Sender: FDA-Public Use
  Company Number: DE-ROCHE-1183949

PATIENT
  Age: 62 None
  Sex: Female

DRUGS (6)
  1. MABTHERA [Suspect]
     Indication: RHEUMATOID ARTHRITIS
     Dosage: 2X1000 MG
     Route: 042
     Dates: start: 200703, end: 200703
  2. MABTHERA [Suspect]
     Dosage: 2X700 MG
     Route: 042
     Dates: start: 20120106, end: 20120120
  3. MABTHERA [Suspect]
     Dosage: 1X1000 MG
     Route: 042
     Dates: start: 20121121, end: 20121121
  4. REMICADE [Suspect]
     Indication: RHEUMATOID ARTHRITIS
     Route: 042
     Dates: start: 200610, end: 200612
  5. CICLOSPORIN [Suspect]
     Indication: RHEUMATOID ARTHRITIS
     Route: 065
     Dates: start: 201112
  6. HYDROXYCHLOROQUINE [Concomitant]
     Indication: RHEUMATOID ARTHRITIS
     Route: 048
     Dates: start: 201112, end: 201112

REACTIONS (3)
  - Breast cancer recurrent [Recovered/Resolved]
  - Breast cancer [Unknown]
  - Breast cancer recurrent [Not Recovered/Not Resolved]
